FAERS Safety Report 4996612-7 (Version None)
Quarter: 2006Q2

REPORT INFORMATION
  Report Type: 
  Country: None (occurrence: None)
  Receive Date: 20060509
  Receipt Date: 20060502
  Transmission Date: 20061013
  Serious: Yes (Hospitalization)
  Sender: FDA-Public Use
  Company Number: US-BRISTOL-MYERS SQUIBB COMPANY-13364393

PATIENT
  Age: 59 Year
  Sex: Female
  Weight: 40 kg

DRUGS (14)
  1. ERBITUX [Suspect]
     Indication: NEOPLASM MALIGNANT
     Dosage: INITIATED AT 400 MG IV ON 23-JAN-2006.
     Route: 042
     Dates: start: 20060306, end: 20060306
  2. ATIVAN [Concomitant]
  3. AMBIEN [Concomitant]
  4. DEXAMETHASONE [Concomitant]
     Indication: PREMEDICATION
     Dates: start: 20060306, end: 20060306
  5. REGULAR INSULIN [Concomitant]
     Dosage: SLIDING SCALE.
  6. LANTUS [Concomitant]
     Dosage: 1 DOSAGE FORM = 35 UNITS.
  7. MIRALAX [Concomitant]
  8. ONDANSETRON HCL [Concomitant]
     Indication: PREMEDICATION
     Dates: start: 20060306, end: 20060306
  9. OXYCODONE [Concomitant]
     Dosage: 1 DOSAGE FORM = 5 TO 15 MG.  ADMINISTERED EVERY 3 HOURS AS NEEDED.
  10. OXYCONTIN [Concomitant]
  11. PREDNISONE TAB [Concomitant]
     Indication: PREMEDICATION
     Dates: start: 20060304, end: 20060304
  12. SINGULAIR [Concomitant]
  13. SONATA [Concomitant]
  14. TAGAMET [Concomitant]
     Indication: PREMEDICATION
     Dates: start: 20060304, end: 20060304

REACTIONS (5)
  - CARDIAC FAILURE CONGESTIVE [None]
  - DYSPNOEA [None]
  - PANCYTOPENIA [None]
  - VENOUS THROMBOSIS [None]
  - WOUND [None]
